FAERS Safety Report 24540931 (Version 1)
Quarter: 2024Q4

REPORT INFORMATION
  Report Type: Spontaneous
  Country: US (occurrence: None)
  Receive Date: 20241023
  Receipt Date: 20241023
  Transmission Date: 20250115
  Serious: No
  Sender: Public
  Company Number: None

PATIENT

DRUGS (2)
  1. ARIPIPRAZOLE [Suspect]
     Active Substance: ARIPIPRAZOLE
  2. ARISTADA [Suspect]
     Active Substance: ARIPIPRAZOLE LAUROXIL

REACTIONS (3)
  - Wrong technique in product usage process [None]
  - Product dosage form issue [None]
  - Incorrect product dosage form administered [None]
